FAERS Safety Report 25150180 (Version 1)
Quarter: 2025Q2

REPORT INFORMATION
  Report Type: Spontaneous
  Country: US (occurrence: US)
  Receive Date: 20250402
  Receipt Date: 20250402
  Transmission Date: 20250717
  Serious: No
  Sender: ELI LILLY AND CO
  Company Number: US-ELI_LILLY_AND_COMPANY-US202504000212

PATIENT
  Age: 66 Year
  Weight: 56.689 kg

DRUGS (1)
  1. HUMULIN R [Suspect]
     Active Substance: INSULIN HUMAN
     Indication: Product used for unknown indication
     Route: 065

REACTIONS (3)
  - Autoimmune thyroiditis [Unknown]
  - Hypergammaglobulinaemia benign monoclonal [Unknown]
  - Lysosomal acid lipase deficiency [Unknown]
